FAERS Safety Report 8082917-2 (Version None)
Quarter: 2012Q1

REPORT INFORMATION
  Report Type: 
  Country: None (occurrence: None)
  Receive Date: 20120127
  Receipt Date: 20110203
  Transmission Date: 20120608
  Serious: No
  Sender: FDA-Public Use
  Company Number: US-ABBOTT-11P-163-0702542-00

PATIENT
  Age: 51 Year
  Sex: Male

DRUGS (2)
  1. HUMIRA [Suspect]
     Indication: ANKYLOSING SPONDYLITIS
     Dates: start: 20110101
  2. ATACAND [Concomitant]
     Indication: HYPERTENSION

REACTIONS (3)
  - NASAL CONGESTION [None]
  - COUGH [None]
  - OROPHARYNGEAL PAIN [None]
